FAERS Safety Report 5530978-4 (Version None)
Quarter: 2007Q4

REPORT INFORMATION
  Report Type: 
  Country: None (occurrence: None)
  Receive Date: 20071130
  Receipt Date: 20071122
  Transmission Date: 20080405
  Serious: Yes (Other)
  Sender: FDA-Public Use
  Company Number: JP-PFIZER INC-2007094588

PATIENT
  Age: 74 Year
  Sex: Female

DRUGS (6)
  1. HALCION [Suspect]
     Route: 048
  2. AMLODIN [Concomitant]
     Route: 048
  3. VALSARTAN [Concomitant]
     Route: 048
  4. PAXIL [Concomitant]
     Route: 048
  5. LIVALO [Concomitant]
     Route: 048
  6. KETOPROFEN [Concomitant]
     Route: 048

REACTIONS (2)
  - ASTHENOPIA [None]
  - EYELID PTOSIS [None]
